FAERS Safety Report 8269154-3 (Version None)
Quarter: 2012Q2

REPORT INFORMATION
  Report Type: 
  Country: None (occurrence: None)
  Receive Date: 20120409
  Receipt Date: 20120330
  Transmission Date: 20120825
  Serious: Yes (Death)
  Sender: FDA-Public Use
  Company Number: US-ROXANE LABORATORIES, INC.-2012-RO-00972RO

PATIENT

DRUGS (7)
  1. CITALOPRAM HYDROBROMIDE [Suspect]
  2. PROMETHAZINE [Suspect]
  3. QUININE SULFATE [Suspect]
  4. TRAZODONE HCL [Suspect]
  5. ESCITALOPRAM [Suspect]
  6. METHADONE HCL [Suspect]
  7. ALPRAZOLAM [Suspect]

REACTIONS (1)
  - TOXICITY TO VARIOUS AGENTS [None]
